FAERS Safety Report 19181954 (Version 1)
Quarter: 2021Q2

REPORT INFORMATION
  Report Type: Spontaneous
  Country: US (occurrence: US)
  Receive Date: 20210426
  Receipt Date: 20210426
  Transmission Date: 20210717
  Serious: Yes (Life-Threatening, Other)
  Sender: FDA-Public Use
  Company Number: US-SUNOVION-2021SUN001439

PATIENT
  Sex: Male

DRUGS (1)
  1. KYNMOBI [Suspect]
     Active Substance: APOMORPHINE HYDROCHLORIDE
     Dosage: TITRATED UTILIZING THE STARTER KIT
     Route: 060
     Dates: start: 202012, end: 202012

REACTIONS (1)
  - Cardiac arrest [Recovering/Resolving]
